FAERS Safety Report 13671751 (Version 5)
Quarter: 2018Q4

REPORT INFORMATION
  Report Type: Spontaneous
  Country: US (occurrence: US)
  Receive Date: 20170620
  Receipt Date: 20181102
  Transmission Date: 20190204
  Serious: Yes (Death)
  Sender: FDA-Public Use
  Company Number: US-ACTELION-A-US2017-155485

PATIENT
  Age: 75 Year
  Sex: Male
  Weight: 122.45 kg

DRUGS (8)
  1. UPTRAVI [Suspect]
     Active Substance: SELEXIPAG
     Dosage: UNK
     Route: 048
     Dates: start: 20160603
  2. ESBRIET [Concomitant]
     Active Substance: PIRFENIDONE
  3. ELIQUIS [Concomitant]
     Active Substance: APIXABAN
  4. TRACLEER [Suspect]
     Active Substance: BOSENTAN
     Indication: PULMONARY ARTERIAL HYPERTENSION
     Dosage: 125 MG, BID
     Route: 048
  5. OXYGEN. [Concomitant]
     Active Substance: OXYGEN
     Dosage: 6 L, UNK
  6. OXYGEN. [Concomitant]
     Active Substance: OXYGEN
     Dosage: 7 L, UNK
  7. UPTRAVI [Suspect]
     Active Substance: SELEXIPAG
     Indication: PULMONARY ARTERIAL HYPERTENSION
     Dosage: 1600 MCG, BID
     Route: 048
     Dates: end: 20181020
  8. ADCIRCA [Concomitant]
     Active Substance: TADALAFIL

REACTIONS (10)
  - Death [Fatal]
  - Dyspnoea [Unknown]
  - Pulmonary function test decreased [Unknown]
  - Cataract operation [Unknown]
  - Oxygen saturation decreased [Unknown]
  - Unevaluable event [Unknown]
  - Anaemia [Unknown]
  - Dyspnoea exertional [Unknown]
  - Respiratory gas exchange disorder [Unknown]
  - Cataract [Unknown]

NARRATIVE: CASE EVENT DATE: 20170613
